FAERS Safety Report 6838850-4 (Version None)
Quarter: 2010Q3

REPORT INFORMATION
  Report Type: 
  Country: None (occurrence: None)
  Receive Date: 20100713
  Receipt Date: 20070710
  Transmission Date: 20110219
  Serious: No
  Sender: FDA-Public Use
  Company Number: US-PFIZER INC-2007039648

PATIENT
  Age: 40 Year
  Sex: Female
  Weight: 56.8 kg

DRUGS (2)
  1. CHANTIX [Suspect]
     Indication: SMOKING CESSATION THERAPY
     Dates: start: 20070505
  2. ADVAIR DISKUS 100/50 [Concomitant]
     Indication: ASTHMA

REACTIONS (2)
  - NAUSEA [None]
  - VOMITING [None]
